FAERS Safety Report 23453044 (Version 2)
Quarter: 2024Q3

REPORT INFORMATION
  Report Type: Report from Study
  Country: IT (occurrence: IT)
  Receive Date: 20240129
  Receipt Date: 20240911
  Transmission Date: 20241016
  Serious: Yes (Other)
  Sender: RANBAXY
  Company Number: IT-SUN PHARMACEUTICAL INDUSTRIES LTD-2024R1-429039

PATIENT
  Age: 84 Year
  Sex: Male

DRUGS (2)
  1. VALPROIC ACID [Interacting]
     Active Substance: VALPROIC ACID
     Indication: Atrial fibrillation
     Dosage: 600 MILLIGRAM/DAY
     Route: 065
  2. EDOXABAN [Interacting]
     Active Substance: EDOXABAN
     Indication: Atrial fibrillation
     Dosage: 60 MILLIGRAM/DAY
     Route: 065

REACTIONS (3)
  - Drug interaction [Unknown]
  - Drug level decreased [Unknown]
  - Idiopathic generalised epilepsy [Unknown]
